FAERS Safety Report 7992695-0 (Version None)
Quarter: 2011Q4

REPORT INFORMATION
  Report Type: 
  Country: None (occurrence: None)
  Receive Date: 20111219
  Receipt Date: 20110304
  Transmission Date: 20120403
  Serious: No
  Sender: FDA-Public Use
  Company Number: US-ASTRAZENECA-2011SE12141

PATIENT
  Age: 70 Year
  Sex: Female

DRUGS (3)
  1. CRESTOR [Suspect]
     Route: 048
  2. COUMADIN [Concomitant]
  3. CRESTOR [Suspect]
     Route: 048

REACTIONS (8)
  - DIZZINESS [None]
  - MYALGIA [None]
  - FATIGUE [None]
  - ARTHRALGIA [None]
  - CONTUSION [None]
  - DRUG DOSE OMISSION [None]
  - CONDITION AGGRAVATED [None]
  - PARAESTHESIA [None]
